FAERS Safety Report 18084255 (Version 1)
Quarter: 2020Q3

REPORT INFORMATION
  Report Type: Spontaneous
  Country: CA (occurrence: CA)
  Receive Date: 20200729
  Receipt Date: 20200729
  Transmission Date: 20201103
  Serious: Yes (Hospitalization, Other)
  Sender: FDA-Public Use
  Company Number: CA-LUPIN PHARMACEUTICALS INC.-2020-03858

PATIENT
  Age: 11 Year
  Sex: Male

DRUGS (28)
  1. POLYETHYLENE GLYCOL [Suspect]
     Active Substance: POLYETHYLENE GLYCOLS
     Indication: CHILD ABUSE
     Dosage: 30 MILLIGRAM, BID
     Route: 048
  2. LORAZEPAM. [Suspect]
     Active Substance: LORAZEPAM
     Indication: CHILD ABUSE
     Dosage: DOSE: 0.5MG AND 2MG, AS REQUIRED
     Route: 060
     Dates: start: 2016
  3. CLOBAZAM. [Suspect]
     Active Substance: CLOBAZAM
     Indication: CHILD ABUSE
     Dosage: 20 MILLIGRAM, BID
     Route: 048
  4. SALBUTAMOL SULFATE [Suspect]
     Active Substance: ALBUTEROL SULFATE
     Indication: CHILD ABUSE
     Dosage: DOSE: 100MICROG PER ACTUATION; 2 PUFFS EVERY 4 HOURS AS REQUIRED
  5. CELECOXIB. [Suspect]
     Active Substance: CELECOXIB
     Indication: CHILD ABUSE
     Dosage: 100 MILLIGRAM, BID
     Route: 048
     Dates: start: 2016
  6. FLUOXETINE [Suspect]
     Active Substance: FLUOXETINE HYDROCHLORIDE
     Indication: CHILD ABUSE
     Dosage: 20 MILLIGRAM, QD
     Route: 048
  7. CLONIDINE. [Suspect]
     Active Substance: CLONIDINE
     Indication: CHILD ABUSE
     Dosage: 0.15 MILLIGRAM, QD (0.05MG EVERY MORNING AND 0.1 MG EVERY EVENING)
     Route: 048
  8. COLECALCIFEROL [Suspect]
     Active Substance: CHOLECALCIFEROL
     Indication: CHILD ABUSE
     Dosage: 2000 INTERNATIONAL UNIT, QD
     Route: 048
  9. PANTOPRAZOLE [Suspect]
     Active Substance: PANTOPRAZOLE
     Indication: CHILD ABUSE
     Dosage: 40 MILLIGRAM, QD
     Route: 048
  10. MELATONIN [Suspect]
     Active Substance: MELATONIN
     Indication: CHILD ABUSE
     Dosage: ADMINISTERED EVERY NIGHT
     Route: 048
  11. HYDROMORPHONE [Suspect]
     Active Substance: HYDROMORPHONE
     Indication: CHILD ABUSE
     Dosage: IMMEDIATE RELEASE
     Route: 065
     Dates: start: 2016
  12. FLUTICASONE. [Suspect]
     Active Substance: FLUTICASONE
     Indication: CHILD ABUSE
     Dosage: DOSE: 250MICROG PER ACTUATION; 2 PUFFS DAILY
  13. METHADONE [Suspect]
     Active Substance: METHADONE HYDROCHLORIDE
     Indication: CHILD ABUSE
     Dosage: ADMINISTERED THREE TIMES DAILY
     Route: 048
     Dates: start: 2016
  14. DIPHENHYDRAMINE. [Suspect]
     Active Substance: DIPHENHYDRAMINE
     Indication: CHILD ABUSE
     Dosage: ADMINISTERED EVERY 6 HOURS AS REQUIRED
     Route: 048
  15. ARIPIPRAZOLE. [Suspect]
     Active Substance: ARIPIPRAZOLE
     Indication: CHILD ABUSE
     Dosage: 2 MILLIGRAM, TID
     Route: 048
  16. RANITIDINE. [Suspect]
     Active Substance: RANITIDINE
     Indication: CHILD ABUSE
     Dosage: 150 MILLIGRAM, QD
     Route: 048
  17. DIMENHYDRINATE. [Suspect]
     Active Substance: DIMENHYDRINATE
     Indication: CHILD ABUSE
     Dosage: ADMINISTERED DAILY AS REQUIRED
     Route: 048
  18. HYDROXYCHLOROQUINE [Suspect]
     Active Substance: HYDROXYCHLOROQUINE
     Indication: CHILD ABUSE
     Dosage: 400 MILLIGRAM, QD
     Route: 048
  19. KETOROLAC [Suspect]
     Active Substance: KETOROLAC TROMETHAMINE
     Indication: CHILD ABUSE
     Dosage: ADMINISTERED EVERY 6 HOURS AS REQUIRED
     Route: 048
  20. ASCORBIC ACID. [Suspect]
     Active Substance: ASCORBIC ACID
     Indication: CHILD ABUSE
     Dosage: 1500 MILLIGRAM, QD
     Route: 048
  21. METHOCARBAMOL;PARACETAMOL [Suspect]
     Active Substance: ACETAMINOPHEN\METHOCARBAMOL
     Indication: CHILD ABUSE
     Dosage: UNK
     Route: 048
     Dates: start: 2016
  22. BACLOFEN. [Suspect]
     Active Substance: BACLOFEN
     Indication: CHILD ABUSE
     Dosage: 20 MILLIGRAM, TID
     Route: 048
  23. GABAPENTIN. [Suspect]
     Active Substance: GABAPENTIN
     Indication: CHILD ABUSE
     Dosage: ADMINISTERED THREE TIMES DAILY
     Route: 048
     Dates: start: 2016
  24. OMEGA 3 FISH OIL [DOCOSAHEXAENOIC ACID;EICOSAPENTAENOIC ACID] [Suspect]
     Active Substance: DOCONEXENT\ICOSAPENT
     Indication: CHILD ABUSE
     Dosage: 200?400?1000MG DAILY
     Route: 048
  25. BISACODYL. [Suspect]
     Active Substance: BISACODYL
     Indication: CHILD ABUSE
     Dosage: 5 MILLIGRAM, QD (AS REQUIRED)
     Route: 048
  26. LEUPRORELIN [Suspect]
     Active Substance: LEUPROLIDE ACETATE
     Indication: CHILD ABUSE
     Dosage: 7.5 MILLIGRAM EVERY 30 DAY
     Route: 030
  27. MONTELUKAST [Suspect]
     Active Substance: MONTELUKAST SODIUM
     Indication: CHILD ABUSE
     Dosage: 10 MILLIGRAM, QD
     Route: 048
  28. PHENOBARBITAL. [Suspect]
     Active Substance: PHENOBARBITAL
     Indication: CHILD ABUSE
     Dosage: 30 MILLIGRAM, BID
     Route: 048

REACTIONS (3)
  - Respiratory depression [Recovered/Resolved]
  - Victim of child abuse [Unknown]
  - Drug dependence [Unknown]
